FAERS Safety Report 4378949-8 (Version None)
Quarter: 2004Q2

REPORT INFORMATION
  Report Type: 
  Country: None (occurrence: None)
  Receive Date: 20040610
  Receipt Date: 20040531
  Transmission Date: 20050107
  Serious: Yes (Life-Threatening, Hospitalization)
  Sender: FDA-Public Use
  Company Number: 2004214952JP

PATIENT
  Age: 65 Year
  Sex: Male
  Weight: 51 kg

DRUGS (11)
  1. ALDACTONE [Suspect]
     Indication: CARDIAC FAILURE
     Dosage: 25 MG, QD, ORAL
     Route: 048
     Dates: start: 20040325
  2. TICLOPIDINE HCL [Suspect]
     Indication: STENT PLACEMENT
     Dosage: 100 MG, BID, ORAL
     Route: 048
     Dates: start: 20040421, end: 20040518
  3. ENALAPRIL MALEATE [Suspect]
     Indication: CARDIAC FAILURE
     Dosage: 5 MG, BID, ORAL
     Route: 048
     Dates: start: 20040322, end: 20040518
  4. ALLOPURINOL [Suspect]
     Indication: HYPERURICAEMIA
     Dosage: 100 MG, QD, ORAL
     Route: 048
     Dates: start: 20040429, end: 20040518
  5. MEXITIL (MEXILETINE HYDROCHLORIDE) CAPSULE [Concomitant]
     Indication: VENTRICULAR TACHYCARDIA
     Dosage: 100 MG, TID, ORAL
     Route: 048
     Dates: start: 20040406, end: 20040518
  6. ASPIRIN [Concomitant]
  7. LASIX [Concomitant]
  8. ARTIST [Concomitant]
  9. PARIET (RABEPRAZOLE SODIUM) [Concomitant]
  10. SELBEX (STREPROCOCCUS FAECALIS, BACILLUS SUBTILIS) [Concomitant]
  11. WARFARIN SODIUM [Concomitant]

REACTIONS (9)
  - AGRANULOCYTOSIS [None]
  - INFECTION [None]
  - INTERSTITIAL LUNG DISEASE [None]
  - LYMPHOCYTE STIMULATION TEST POSITIVE [None]
  - MALAISE [None]
  - NEUTROPHIL COUNT DECREASED [None]
  - PYREXIA [None]
  - RENAL FAILURE [None]
  - WHITE BLOOD CELL COUNT DECREASED [None]
